FAERS Safety Report 5513517-3 (Version None)
Quarter: 2007Q4

REPORT INFORMATION
  Report Type: 
  Country: None (occurrence: None)
  Receive Date: 20071108
  Receipt Date: 20071102
  Transmission Date: 20080405
  Serious: Yes (Life-Threatening, Hospitalization)
  Sender: FDA-Public Use
  Company Number: 2007RL000499

PATIENT
  Age: 80 Year
  Sex: Female

DRUGS (7)
  1. PROPAFENONE HCL [Suspect]
     Indication: ATRIAL FIBRILLATION
     Dosage: 600 MG; QD; PO, 300 MG; QD; PO
     Route: 048
     Dates: start: 20060220, end: 20060220
  2. PROPAFENONE HCL [Suspect]
     Indication: PROPHYLAXIS
     Dosage: 600 MG; QD; PO, 300 MG; QD; PO
     Route: 048
     Dates: start: 20060220, end: 20060220
  3. PROPAFENONE HCL [Suspect]
     Indication: ATRIAL FIBRILLATION
     Dosage: 600 MG; QD; PO, 300 MG; QD; PO
     Route: 048
     Dates: start: 20060221, end: 20060221
  4. PROPAFENONE HCL [Suspect]
     Indication: PROPHYLAXIS
     Dosage: 600 MG; QD; PO, 300 MG; QD; PO
     Route: 048
     Dates: start: 20060221, end: 20060221
  5. METOPROLOL SUCCINATE [Concomitant]
  6. DYAZIDE [Concomitant]
  7. LEVOTHYROXINE SODIUM [Concomitant]

REACTIONS (1)
  - CARDIOGENIC SHOCK [None]
